FAERS Safety Report 11825111 (Version 2)
Quarter: 2016Q1

REPORT INFORMATION
  Report Type: Spontaneous
  Country: US (occurrence: US)
  Receive Date: 20151211
  Receipt Date: 20160110
  Transmission Date: 20160525
  Serious: Yes (Death)
  Sender: FDA-Public Use
  Company Number: US-ROCHE-1642427

PATIENT
  Age: 75 Year
  Sex: Male
  Weight: 88.08 kg

DRUGS (1)
  1. ESBRIET [Suspect]
     Active Substance: PIRFENIDONE
     Indication: IDIOPATHIC PULMONARY FIBROSIS
     Dosage: 3 CAPSULES
     Route: 048
     Dates: start: 20150915

REACTIONS (3)
  - Death [Fatal]
  - Abdominal distension [Unknown]
  - Malaise [Unknown]

NARRATIVE: CASE EVENT DATE: 20151119
